FAERS Safety Report 8575697-5 (Version None)
Quarter: 2012Q3

REPORT INFORMATION
  Report Type: 
  Country: None (occurrence: None)
  Receive Date: 20120807
  Receipt Date: 20120806
  Transmission Date: 20120928
  Serious: Yes (Hospitalization, Other)
  Sender: FDA-Public Use
  Company Number: PHHY2012CA051771

PATIENT
  Sex: Male

DRUGS (2)
  1. SANDOSTATIN [Suspect]
     Indication: HAEMORRHAGE
     Dosage: 150 UG, TID
     Route: 058
  2. SANDOSTATIN LAR [Suspect]
     Indication: HAEMORRHAGE
     Dosage: 30 MG, ONCE A MONTH
     Route: 030
     Dates: start: 20120620

REACTIONS (11)
  - TACHYCARDIA [None]
  - TOE AMPUTATION [None]
  - POST PROCEDURAL INFECTION [None]
  - HYPOTENSION [None]
  - WOUND SECRETION [None]
  - ASTHENIA [None]
  - PULMONARY OEDEMA [None]
  - BONE DISORDER [None]
  - OCCULT BLOOD POSITIVE [None]
  - MALAISE [None]
  - SEPTIC SHOCK [None]
